FAERS Safety Report 23413746 (Version 1)
Quarter: 2024Q1

REPORT INFORMATION
  Report Type: Spontaneous
  Country: US (occurrence: US)
  Receive Date: 20240117
  Receipt Date: 20240117
  Transmission Date: 20240410
  Serious: No
  Sender: FDA-Public Use
  Company Number: US-NOVOPROD-1116772

PATIENT
  Sex: Female

DRUGS (2)
  1. OZEMPIC [Suspect]
     Active Substance: SEMAGLUTIDE
     Indication: Type 2 diabetes mellitus
     Dosage: 0.25 MG, QW
     Route: 058
     Dates: start: 20230727
  2. OZEMPIC [Suspect]
     Active Substance: SEMAGLUTIDE
     Dosage: 0.5 MG, QW
     Route: 058

REACTIONS (6)
  - Rhinorrhoea [Recovered/Resolved]
  - Oropharyngeal pain [Recovered/Resolved]
  - Headache [Recovered/Resolved]
  - Nausea [Recovering/Resolving]
  - Fatigue [Recovering/Resolving]
  - Wrong technique in product usage process [Recovered/Resolved]

NARRATIVE: CASE EVENT DATE: 20230727
